FAERS Safety Report 24660133 (Version 1)
Quarter: 2024Q4

REPORT INFORMATION
  Report Type: Spontaneous
  Country: CA (occurrence: CA)
  Receive Date: 20241125
  Receipt Date: 20241125
  Transmission Date: 20250115
  Serious: Yes (Other)
  Sender: PFIZER
  Company Number: CA-PFIZER INC-202400307600

PATIENT
  Age: 69 Year
  Sex: Male

DRUGS (6)
  1. METHOTREXATE SODIUM [Suspect]
     Active Substance: METHOTREXATE SODIUM
     Dosage: 25 MG, WEEKLY
  2. PROLIA [Concomitant]
     Active Substance: DENOSUMAB
     Dosage: 1 DF, EVERY 6 MONTHS
  3. GABAPENTIN [Concomitant]
     Active Substance: GABAPENTIN
     Dosage: 100MG TID + 600MG AT BED TIME
  4. OMEPRAZOLE [Concomitant]
     Active Substance: OMEPRAZOLE
     Dosage: 20 MG, 1X/DAY
  5. AMLODIPINE BESYLATE\OLMESARTAN MEDOXOMIL [Concomitant]
     Active Substance: AMLODIPINE BESYLATE\OLMESARTAN MEDOXOMIL
     Dosage: 5-20MG
  6. FOLIC ACID [Concomitant]
     Active Substance: FOLIC ACID
     Dosage: 5MG ONCE DAILY FOR 6 DAYS PER WEEK

REACTIONS (1)
  - Neoplasm malignant [Unknown]
